FAERS Safety Report 10079544 (Version 3)
Quarter: 2016Q1

REPORT INFORMATION
  Report Type: Spontaneous
  Country: US (occurrence: US)
  Receive Date: 20140415
  Receipt Date: 20160125
  Transmission Date: 20160525
  Serious: Yes (Hospitalization, Other)
  Sender: FDA-Public Use
  Company Number: US-BAYER-2014-054954

PATIENT
  Age: 48 Year
  Sex: Female
  Weight: 110 kg

DRUGS (3)
  1. LISINOPRIL. [Concomitant]
     Active Substance: LISINOPRIL
     Dosage: 12.5 MG-20 MG DAILY
     Dates: start: 20121012
  2. YAZ [Suspect]
     Active Substance: DROSPIRENONE\ETHINYL ESTRADIOL
     Dosage: UNK
     Dates: start: 2006, end: 2012
  3. HYDROCHLOROTHIAZIDE. [Concomitant]
     Active Substance: HYDROCHLOROTHIAZIDE
     Dosage: 12.5 MG-20 MG DAILY
     Dates: start: 20121012

REACTIONS (6)
  - Injury [None]
  - Pulmonary embolism [None]
  - Cerebrovascular accident [None]
  - Deep vein thrombosis [None]
  - Pain [None]
  - Thrombosis [None]

NARRATIVE: CASE EVENT DATE: 201101
